FAERS Safety Report 18432032 (Version 2)
Quarter: 2020Q4

REPORT INFORMATION
  Report Type: Spontaneous
  Country: US (occurrence: US)
  Receive Date: 20201027
  Receipt Date: 20201210
  Transmission Date: 20210114
  Serious: Yes (Hospitalization, Disabling)
  Sender: FDA-Public Use
  Company Number: US-JNJFOC-A-US2018-179261

PATIENT
  Age: 71 Year
  Sex: Female
  Weight: 58.11 kg

DRUGS (4)
  1. OPSUMIT [Suspect]
     Active Substance: MACITENTAN
     Dosage: 10 MG, QD
     Route: 048
     Dates: start: 20170829
  2. AMBIEN [Concomitant]
     Active Substance: ZOLPIDEM TARTRATE
  3. OPSUMIT [Suspect]
     Active Substance: MACITENTAN
     Indication: PULMONARY ARTERIAL HYPERTENSION
     Dosage: 10 MG, QD
     Route: 048
     Dates: start: 20170906
  4. BELSOMRA [Suspect]
     Active Substance: SUVOREXANT
     Indication: PRODUCT USED FOR UNKNOWN INDICATION
     Route: 065

REACTIONS (27)
  - Anaemia [Unknown]
  - Headache [Unknown]
  - Sinus congestion [Unknown]
  - Blood cholesterol increased [Unknown]
  - Chest pain [Unknown]
  - Parkinson^s disease [Unknown]
  - Lung perforation [Recovered/Resolved]
  - Pneumonectomy [Recovered/Resolved]
  - Hospitalisation [Recovered/Resolved]
  - Eustachian tube disorder [Unknown]
  - Kidney infection [Unknown]
  - Rib fracture [Recovered/Resolved]
  - Haemorrhoids [Unknown]
  - Hypoacusis [Unknown]
  - Unevaluable event [Not Recovered/Not Resolved]
  - Pulmonary pain [Unknown]
  - Depression [Unknown]
  - Fall [Recovered/Resolved]
  - Surgery [Recovered/Resolved]
  - Illness [Unknown]
  - Sinusitis [Unknown]
  - Escherichia infection [Unknown]
  - Catheterisation cardiac [Recovered/Resolved]
  - Pruritus [Unknown]
  - Ear infection [Unknown]
  - Tympanic membrane perforation [Unknown]
  - Allergy to plants [Not Recovered/Not Resolved]

NARRATIVE: CASE EVENT DATE: 20190206
